FAERS Safety Report 8598393-7 (Version None)
Quarter: 2012Q3

REPORT INFORMATION
  Report Type: 
  Country: None (occurrence: None)
  Receive Date: 20120816
  Receipt Date: 20120810
  Transmission Date: 20120928
  Serious: Yes (Life-Threatening)
  Sender: FDA-Public Use
  Company Number: US-ALEXION-A201201513

PATIENT
  Sex: Male

DRUGS (1)
  1. SOLIRIS [Suspect]
     Indication: PAROXYSMAL NOCTURNAL HAEMOGLOBINURIA
     Dosage: 900 MG Q 12D
     Route: 042

REACTIONS (3)
  - HAEMOLYSIS [None]
  - MYOCARDIAL INFARCTION [None]
  - LEUKOPENIA [None]
